FAERS Safety Report 10598225 (Version 1)
Quarter: 2014Q4

REPORT INFORMATION
  Report Type: Spontaneous
  Country: FR (occurrence: FR)
  Receive Date: 20141121
  Receipt Date: 20141121
  Transmission Date: 20150529
  Serious: Yes (Hospitalization)
  Sender: FDA-Public Use
  Company Number: FR-009507513-1411FRA006475

PATIENT
  Age: 89 Year
  Sex: Female

DRUGS (4)
  1. OFLOCET (OFLOXACIN) [Suspect]
     Active Substance: OFLOXACIN
     Dosage: 200 MG, BID
     Route: 048
     Dates: start: 20140918, end: 20140921
  2. TIENAM 500MG, POUDRE ET SOLUTION POUR USAGE PARENTERAL (IM) [Suspect]
     Active Substance: CILASTATIN SODIUM\IMIPENEM
     Dosage: 500 MG, TID
     Route: 051
     Dates: start: 20140922, end: 20140929
  3. PYOSTACINE [Suspect]
     Active Substance: PRISTINAMYCIN
     Dosage: 3 G, QD
     Route: 048
     Dates: start: 20140918, end: 20140921
  4. TARGOCID [Suspect]
     Active Substance: TEICOPLANIN
     Dosage: 400 MG, QD
     Dates: start: 20140922, end: 20140928

REACTIONS (1)
  - Acute generalised exanthematous pustulosis [Unknown]

NARRATIVE: CASE EVENT DATE: 20140930
